FAERS Safety Report 9310362 (Version 1)
Quarter: 2013Q2

REPORT INFORMATION
  Report Type: Spontaneous
  Country: AT (occurrence: AT)
  Receive Date: 20130527
  Receipt Date: 20130527
  Transmission Date: 20140414
  Serious: Yes (Hospitalization)
  Sender: FDA-Public Use
  Company Number: AT-BRISTOL-MYERS SQUIBB COMPANY-18934935

PATIENT
  Sex: 0

DRUGS (1)
  1. ABILIFY TABS [Suspect]
     Route: 048

REACTIONS (1)
  - Thrombosis [Unknown]
